FAERS Safety Report 9096113 (Version 3)
Quarter: 2013Q4

REPORT INFORMATION
  Report Type: Spontaneous
  Country: US (occurrence: US)
  Receive Date: 20130207
  Receipt Date: 20131018
  Transmission Date: 20140711
  Serious: Yes (Hospitalization, Other)
  Sender: FDA-Public Use
  Company Number: US-ROCHE-1056135

PATIENT
  Age: 33 Year
  Sex: Female
  Weight: 59.02 kg

DRUGS (1)
  1. ACCUTANE [Suspect]
     Indication: ACNE
     Route: 065
     Dates: start: 1987, end: 1989

REACTIONS (3)
  - Colitis ulcerative [Unknown]
  - Inflammatory bowel disease [Unknown]
  - Haemorrhoids [Unknown]
